FAERS Safety Report 10978098 (Version 1)
Quarter: 2015Q2

REPORT INFORMATION
  Report Type: Spontaneous
  Country: US (occurrence: US)
  Receive Date: 20150402
  Receipt Date: 20150402
  Transmission Date: 20150821
  Serious: Yes (Life-Threatening, Hospitalization, Other)
  Sender: FDA-Public Use
  Company Number: US-MALLINCKRODT-T201501742

PATIENT
  Sex: Female
  Weight: 55 kg

DRUGS (13)
  1. PREDNISONE. [Suspect]
     Active Substance: PREDNISONE
  2. NORVASC [Concomitant]
     Active Substance: AMLODIPINE BESYLATE
     Dosage: 5 MG; BID
  3. CARAFATE [Concomitant]
     Active Substance: SUCRALFATE
     Dosage: TID
  4. PROTONIX [Concomitant]
     Active Substance: PANTOPRAZOLE SODIUM
     Dosage: 40 MG; BID
  5. H.P. ACTHAR [Suspect]
     Active Substance: CORTICOTROPIN
     Indication: RHEUMATOID ARTHRITIS
     Dosage: 80 U/ML; TWICE A WEEK
     Route: 030
     Dates: start: 201403
  6. LASIX [Concomitant]
     Active Substance: FUROSEMIDE
     Dosage: 20 MG; QD
  7. VITAMIN B12 [Concomitant]
     Active Substance: CYANOCOBALAMIN
  8. VITAMINS NOS [Concomitant]
     Active Substance: VITAMINS
  9. PROMETHAZINE [Concomitant]
     Active Substance: PROMETHAZINE\PROMETHAZINE HYDROCHLORIDE
  10. LEXAPRO [Concomitant]
     Active Substance: ESCITALOPRAM OXALATE
     Dosage: 20 MG; QD
  11. BACLOFEN. [Concomitant]
     Active Substance: BACLOFEN
     Dosage: 20 MG; QD
  12. GABAPENTIN. [Concomitant]
     Active Substance: GABAPENTIN
     Dosage: 300 MG; TID
  13. TRACLEER [Concomitant]
     Active Substance: BOSENTAN\BOSENTAN MONOHYDRATE

REACTIONS (6)
  - Gastrointestinal haemorrhage [Recovering/Resolving]
  - Perforated ulcer [Recovering/Resolving]
  - Food intolerance [Recovering/Resolving]
  - Sepsis [Recovering/Resolving]
  - Gastrointestinal infection [Recovering/Resolving]
  - Abnormal loss of weight [Recovering/Resolving]
